FAERS Safety Report 7981412-6 (Version None)
Quarter: 2011Q4

REPORT INFORMATION
  Report Type: 
  Country: None (occurrence: None)
  Receive Date: 20111213
  Receipt Date: 20111201
  Transmission Date: 20120403
  Serious: Yes (Hospitalization)
  Sender: FDA-Public Use
  Company Number: 2009002894

PATIENT
  Age: 74 Year
  Sex: Male
  Weight: 81 kg

DRUGS (17)
  1. ARTIST (CARVEDILOL) [Concomitant]
  2. SULBACTAM [Concomitant]
  3. CELECOXIB [Concomitant]
  4. MAGMITT (MAGNESIUM OXIDE) [Concomitant]
  5. GASMOTIN (MOSAPRIDE CITRATE) [Concomitant]
  6. MUCOSOLVAN (AMBROXOL HYDROCHLORIDE) [Concomitant]
  7. AMPICILLIN [Concomitant]
  8. DIGOXIN [Concomitant]
  9. TORSEMIDE [Concomitant]
  10. OMEPRAL (OMEPRAZOLE SODIUM) [Concomitant]
  11. AMPICILLIN [Concomitant]
  12. SULBACTAM [Concomitant]
  13. CODEINE PHOSPHATE [Concomitant]
  14. TARCEVA [Suspect]
     Indication: LUNG SQUAMOUS CELL CARCINOMA STAGE UNSPECIFIED
     Dosage: 150 MG, UID/QD; 125 MG, UID/QD, ORAL
     Route: 048
     Dates: start: 20090722, end: 20090804
  15. TARCEVA [Suspect]
     Indication: LUNG SQUAMOUS CELL CARCINOMA STAGE UNSPECIFIED
     Dosage: 150 MG, UID/QD; 125 MG, UID/QD, ORAL
     Route: 048
     Dates: start: 20090812, end: 20090820
  16. VOLTAREN [Concomitant]
  17. GARENOXACIN MESYLATE [Concomitant]

REACTIONS (6)
  - CARDIAC FAILURE [None]
  - PNEUMONIA [None]
  - LUNG SQUAMOUS CELL CARCINOMA STAGE UNSPECIFIED [None]
  - NEOPLASM PROGRESSION [None]
  - GASTRIC ULCER HAEMORRHAGE [None]
  - HAEMOGLOBIN DECREASED [None]
